FAERS Safety Report 6571293-X (Version None)
Quarter: 2010Q1

REPORT INFORMATION
  Report Type: 
  Country: None (occurrence: None)
  Receive Date: 20100129
  Receipt Date: 20100119
  Transmission Date: 20100710
  Serious: Yes (Death)
  Sender: FDA-Public Use
  Company Number: PERL20100003

PATIENT
  Age: 28 Year
  Sex: Male

DRUGS (2)
  1. PERCOLONE        (OXYCODONE) [Suspect]
     Indication: DRUG USE FOR UNKNOWN INDICATION
  2. CITALOPRAM HYDROBROMIDE [Suspect]
     Indication: DRUG USE FOR UNKNOWN INDICATION

REACTIONS (7)
  - AGGRESSION [None]
  - ALCOHOL USE [None]
  - FACE INJURY [None]
  - LEGAL PROBLEM [None]
  - NARCOTIC INTOXICATION [None]
  - OVERDOSE [None]
  - UNRESPONSIVE TO STIMULI [None]
